FAERS Safety Report 4861402-2 (Version None)
Quarter: 2005Q4

REPORT INFORMATION
  Report Type: 
  Country: None (occurrence: None)
  Receive Date: 20051220
  Receipt Date: 20051205
  Transmission Date: 20060501
  Serious: Yes (Other)
  Sender: FDA-Public Use
  Company Number: DE-ROCHE-427649

PATIENT
  Age: 66 Year
  Sex: Male

DRUGS (2)
  1. INTERFERON ALFA [Suspect]
     Indication: NON-HODGKIN'S LYMPHOMA
     Route: 065
  2. MARCUMAR [Interacting]
     Indication: HEART VALVE REPLACEMENT
     Route: 048

REACTIONS (2)
  - DRUG INTERACTION [None]
  - INTERNATIONAL NORMALISED RATIO INCREASED [None]
